FAERS Safety Report 12967636 (Version 2)
Quarter: 2019Q3

REPORT INFORMATION
  Report Type: Spontaneous
  Country: US (occurrence: US)
  Receive Date: 20161123
  Receipt Date: 20190822
  Transmission Date: 20191004
  Serious: Yes (Congenital Anomaly, Other)
  Sender: FDA-Public Use
  Company Number: PHEH2016US030520

PATIENT

DRUGS (3)
  1. ZOFRAN [Suspect]
     Active Substance: ONDANSETRON HYDROCHLORIDE
     Indication: FOETAL EXPOSURE DURING PREGNANCY
     Route: 064
  2. ZOFRAN ODT [Suspect]
     Active Substance: ONDANSETRON HYDROCHLORIDE
     Indication: FOETAL EXPOSURE DURING PREGNANCY
     Route: 064
  3. ZOFRAN [Suspect]
     Active Substance: ONDANSETRON HYDROCHLORIDE
     Indication: FOETAL EXPOSURE DURING PREGNANCY
     Route: 064

REACTIONS (12)
  - Cleft palate [Unknown]
  - Cleft lip [Unknown]
  - Emotional distress [Unknown]
  - Anhedonia [Unknown]
  - Injury [Unknown]
  - Pain [Unknown]
  - Heart injury [Unknown]
  - Multiple congenital abnormalities [Unknown]
  - Foetal exposure during pregnancy [Unknown]
  - Hypoplastic left heart syndrome [Unknown]
  - Congenital anomaly [Unknown]
  - Anxiety [Unknown]
